FAERS Safety Report 23709637 (Version 1)
Quarter: 2024Q2

REPORT INFORMATION
  Report Type: Spontaneous
  Country: US (occurrence: US)
  Receive Date: 20240404
  Receipt Date: 20240404
  Transmission Date: 20240716
  Serious: Yes (Other)
  Sender: FDA-Public Use
  Company Number: US-PRINSTON PHARMACEUTICAL INC.-2024PRN00144

PATIENT
  Sex: Female
  Weight: 89.342 kg

DRUGS (7)
  1. LOSARTAN POTASSIUM [Suspect]
     Active Substance: LOSARTAN POTASSIUM
     Indication: Blood pressure management
     Dosage: 50 MG
     Dates: start: 2023
  2. LOSARTAN POTASSIUM AND HYDROCHLOROTHIAZIDE [Suspect]
     Active Substance: HYDROCHLOROTHIAZIDE\LOSARTAN POTASSIUM
     Indication: Blood pressure management
     Dosage: 50MG/12.5MG DOSE
     Dates: start: 202402
  3. LOSARTAN [Suspect]
     Active Substance: LOSARTAN
     Indication: Blood pressure management
     Dosage: 50MG
     Dates: start: 2023
  4. LASIX [Suspect]
     Active Substance: FUROSEMIDE
     Dosage: UNK
     Dates: start: 2024
  5. POTASSIUM [Suspect]
     Active Substance: POTASSIUM
     Dosage: UNK
     Dates: start: 2024
  6. ALEVE [Suspect]
     Active Substance: NAPROXEN SODIUM
     Dosage: UNK
     Dates: end: 2024
  7. ALEVE [Suspect]
     Active Substance: NAPROXEN SODIUM
     Dosage: UNK, EVERY 12 HOURS
     Dates: start: 2024

REACTIONS (20)
  - Neuropathy peripheral [Recovering/Resolving]
  - Disability [Recovering/Resolving]
  - Hypertension [Recovering/Resolving]
  - Pain [Recovering/Resolving]
  - Drug ineffective [Unknown]
  - Arthralgia [Recovering/Resolving]
  - Fluid retention [Recovering/Resolving]
  - Hypoaesthesia [Recovering/Resolving]
  - Proteinuria [Unknown]
  - Gait disturbance [Recovering/Resolving]
  - Weight decreased [Recovering/Resolving]
  - Limb discomfort [Recovering/Resolving]
  - Dysstasia [Recovering/Resolving]
  - Myalgia [Recovering/Resolving]
  - Swelling [Recovering/Resolving]
  - Burning sensation [Recovering/Resolving]
  - Inflammation [Recovering/Resolving]
  - Haematuria [Unknown]
  - Renal disorder [Unknown]
  - Paraesthesia [Recovering/Resolving]

NARRATIVE: CASE EVENT DATE: 20230101
